FAERS Safety Report 6354807-4 (Version None)
Quarter: 2009Q3

REPORT INFORMATION
  Report Type: 
  Country: None (occurrence: None)
  Receive Date: 20090914
  Receipt Date: 20090910
  Transmission Date: 20100115
  Serious: Yes (Death, Other)
  Sender: FDA-Public Use
  Company Number: JP-ASTRAZENECA-2009SE07820

PATIENT
  Age: 25173 Day
  Sex: Female
  Weight: 50 kg

DRUGS (8)
  1. IRESSA [Suspect]
     Indication: LUNG ADENOCARCINOMA
     Route: 048
     Dates: start: 20070817, end: 20080926
  2. IRESSA [Suspect]
     Route: 048
     Dates: start: 20090617, end: 20090805
  3. DEPAS [Concomitant]
     Indication: DEPRESSION
     Route: 048
     Dates: start: 20061110
  4. DECADRON [Concomitant]
     Indication: MALAISE
     Route: 048
     Dates: start: 20090522
  5. LASIX [Concomitant]
     Indication: CARDIAC FAILURE
     Route: 048
     Dates: start: 20090525
  6. TAKEPRON [Concomitant]
     Indication: GASTRIC ULCER
     Route: 048
     Dates: start: 20090609
  7. MEXITIL [Concomitant]
     Indication: SENSORY DISTURBANCE
     Route: 048
     Dates: start: 20090606
  8. TETRAMIDE [Concomitant]
     Indication: DEPRESSION
     Route: 048
     Dates: start: 20090708

REACTIONS (2)
  - ECZEMA [None]
  - INTERSTITIAL LUNG DISEASE [None]
